FAERS Safety Report 5819239-3 (Version None)
Quarter: 2008Q3

REPORT INFORMATION
  Report Type: 
  Country: None (occurrence: None)
  Receive Date: 20080721
  Receipt Date: 20080721
  Transmission Date: 20090109
  Serious: Yes (Hospitalization)
  Sender: FDA-Public Use
  Company Number: None

PATIENT
  Age: 21 Year
  Sex: Female
  Weight: 54.4316 kg

DRUGS (1)
  1. BUILD-A-TAN NEUTROGENA [Suspect]
     Indication: TANNING
     Dates: start: 20080712, end: 20080712

REACTIONS (1)
  - DERMATITIS CONTACT [None]
